FAERS Safety Report 8389872-6 (Version None)
Quarter: 2012Q2

REPORT INFORMATION
  Report Type: 
  Country: None (occurrence: None)
  Receive Date: 20120521
  Receipt Date: 20120516
  Transmission Date: 20120825
  Serious: Yes (Hospitalization)
  Sender: FDA-Public Use
  Company Number: 2009-190267-NL

PATIENT
  Age: 31 Year
  Sex: Female
  Weight: 79.4 kg

DRUGS (2)
  1. NEXIUM [Concomitant]
  2. NUVARING [Suspect]
     Indication: CONTRACEPTION
     Dates: start: 20040401, end: 20060601

REACTIONS (14)
  - BRAIN HERNIATION [None]
  - HYPOAESTHESIA [None]
  - ASTHENIA [None]
  - DIZZINESS [None]
  - VOMITING [None]
  - NAUSEA [None]
  - EMOTIONAL DISORDER [None]
  - SPEECH DISORDER [None]
  - TRANSVERSE SINUS THROMBOSIS [None]
  - PHOTOPHOBIA [None]
  - PARAESTHESIA [None]
  - OEDEMA [None]
  - HEADACHE [None]
  - SUBDURAL HAEMORRHAGE [None]
